FAERS Safety Report 8519690-7 (Version None)
Quarter: 2012Q3

REPORT INFORMATION
  Report Type: 
  Country: None (occurrence: None)
  Receive Date: 20120719
  Receipt Date: 20120704
  Transmission Date: 20120928
  Serious: Yes (Other)
  Sender: FDA-Public Use
  Company Number: CO-AMGEN-COLSP2012042562

PATIENT
  Age: 54 Year
  Sex: Female

DRUGS (6)
  1. FOLIC ACID [Concomitant]
     Indication: OSTEOARTHRITIS
  2. ENBREL [Suspect]
     Indication: PSORIASIS
     Dosage: 50 MG, WEEKLY
     Route: 058
     Dates: start: 20101106, end: 20120301
  3. BETAMETHASONE [Concomitant]
     Indication: PSORIASIS
     Dosage: UNK
  4. METHOTREXATE [Concomitant]
     Indication: MUSCULOSKELETAL PAIN
     Dosage: 2.5 MG HALF TABLET AT MORNING AND HALF AT EVENING ORALLY
     Route: 048
     Dates: start: 20120101
  5. FOLIC ACID [Concomitant]
     Indication: MUSCULOSKELETAL PAIN
     Dosage: 1 MG, 1X/DAY
     Route: 048
  6. NAPROXEN [Concomitant]
     Indication: PRODUCT USED FOR UNKNOWN INDICATION
     Dosage: UNK

REACTIONS (4)
  - TUBERCULIN TEST POSITIVE [None]
  - BLOOD PRESSURE DECREASED [None]
  - DIZZINESS [None]
  - GOITRE [None]
